FAERS Safety Report 4882705-1 (Version None)
Quarter: 2005Q4

REPORT INFORMATION
  Report Type: 
  Country: None (occurrence: None)
  Receive Date: 20051201
  Receipt Date: 20050916
  Transmission Date: 20060501
  Serious: No
  Sender: FDA-Public Use
  Company Number: 2005PV002216

PATIENT
  Age: 50 Year
  Sex: Female
  Weight: 105.6881 kg

DRUGS (28)
  1. BYETTA [Suspect]
     Indication: DIABETES MELLITUS NON-INSULIN-DEPENDENT
     Dosage: SEE IMAGE
     Route: 058
     Dates: start: 20050721, end: 20050821
  2. BYETTA [Suspect]
     Indication: DIABETES MELLITUS NON-INSULIN-DEPENDENT
     Dosage: SEE IMAGE
     Route: 058
     Dates: start: 20050822
  3. ACTOS [Concomitant]
  4. SOLBEE [Concomitant]
  5. ASPIRIN [Concomitant]
  6. VITAMINS [Concomitant]
  7. SINGULAIR [Concomitant]
  8. COLACE [Concomitant]
  9. GLYBURIDE [Concomitant]
  10. PROTONIX [Concomitant]
  11. HYZAAR [Concomitant]
  12. LANTUS [Concomitant]
  13. RELAFEN [Concomitant]
  14. ROBAXIN [Concomitant]
  15. UTA CAPSULES [Concomitant]
  16. INDOCIN [Concomitant]
  17. LASIX [Concomitant]
  18. ULTRAM [Concomitant]
  19. DIABETA [Concomitant]
  20. CELEBREX [Concomitant]
  21. ELAVIL [Concomitant]
  22. FLOTX [Concomitant]
  23. LIPITOR [Concomitant]
  24. NASONEX [Concomitant]
  25. EZOL [Concomitant]
  26. ZANTAC [Concomitant]
  27. CLARITIN [Concomitant]
  28. NOVOLOG MIX 70/30 [Concomitant]

REACTIONS (11)
  - BURSITIS [None]
  - CARDIAC FAILURE CONGESTIVE [None]
  - DECREASED APPETITE [None]
  - FATIGUE [None]
  - HEADACHE [None]
  - HYPOGLYCAEMIA [None]
  - NAUSEA [None]
  - OEDEMA PERIPHERAL [None]
  - PAIN IN EXTREMITY [None]
  - SYNOVIAL CYST [None]
  - WEIGHT INCREASED [None]
